FAERS Safety Report 13818708 (Version 2)
Quarter: 2018Q1

REPORT INFORMATION
  Report Type: Report from Study
  Country: US (occurrence: US)
  Receive Date: 20170731
  Receipt Date: 20180201
  Transmission Date: 20180508
  Serious: Yes (Other)
  Sender: FDA-Public Use
  Company Number: US-IPSEN-CABO-17008170

PATIENT
  Sex: Female

DRUGS (13)
  1. NEURONTIN [Concomitant]
     Active Substance: GABAPENTIN
  2. CLARITIN [Concomitant]
     Active Substance: LORATADINE
  3. REMERON [Concomitant]
     Active Substance: MIRTAZAPINE
  4. ZANTAC [Concomitant]
     Active Substance: RANITIDINE HYDROCHLORIDE
  5. CABOMETYX [Suspect]
     Active Substance: CABOZANTINIB S-MALATE
     Indication: RENAL CANCER
     Dosage: 40 MG, QD
     Route: 048
     Dates: start: 20170106, end: 201702
  6. COMPAZINE [Concomitant]
     Active Substance: PROCHLORPERAZINE MALEATE
  7. KEFLEX [Concomitant]
     Active Substance: CEPHALEXIN
  8. SYNTHROID [Concomitant]
     Active Substance: LEVOTHYROXINE SODIUM
  9. PERCOCET [Concomitant]
     Active Substance: ACETAMINOPHEN\OXYCODONE HYDROCHLORIDE
  10. FLONASE [Concomitant]
     Active Substance: FLUTICASONE PROPIONATE
  11. LOVENOX [Concomitant]
     Active Substance: ENOXAPARIN SODIUM
  12. ROMICIN [Concomitant]
  13. DELTASONE [Concomitant]
     Active Substance: PREDNISONE

REACTIONS (4)
  - Jugular vein thrombosis [Unknown]
  - Unevaluable event [Unknown]
  - Diarrhoea [Unknown]
  - Decubitus ulcer [Not Recovered/Not Resolved]
